FAERS Safety Report 10741090 (Version 1)
Quarter: 2015Q1

REPORT INFORMATION
  Report Type: Spontaneous
  Country: US (occurrence: None)
  Receive Date: 20150123
  Receipt Date: 20150123
  Transmission Date: 20150721
  Serious: No
  Sender: FDA-Public Use
  Company Number: None

PATIENT
  Age: 33 Year
  Sex: Male
  Weight: 98.4 kg

DRUGS (1)
  1. MIRTAZAPINE. [Suspect]
     Active Substance: MIRTAZAPINE
     Indication: BIPOLAR I DISORDER
     Route: 048
     Dates: start: 20140325, end: 20141124

REACTIONS (2)
  - Fatigue [None]
  - Weight increased [None]

NARRATIVE: CASE EVENT DATE: 20141124
